FAERS Safety Report 17602397 (Version 3)
Quarter: 2020Q2

REPORT INFORMATION
  Report Type: Spontaneous
  Country: US (occurrence: US)
  Receive Date: 20200330
  Receipt Date: 20200622
  Transmission Date: 20200713
  Serious: No
  Sender: FDA-Public Use
  Company Number: US-GILEAD-2020-0457079

PATIENT
  Sex: Female

DRUGS (3)
  1. CORTISONE [Concomitant]
     Active Substance: CORTISONE
  2. SOFOSBUVIR;VELPATASVIR [Suspect]
     Active Substance: SOFOSBUVIR\VELPATASVIR
     Indication: CHRONIC HEPATITIS C
     Dosage: 1 DOSAGE FORM, QD
     Route: 048
     Dates: start: 20200316, end: 20200613
  3. MORPHINE [Concomitant]
     Active Substance: MORPHINE

REACTIONS (5)
  - Headache [Recovered/Resolved]
  - Intentional dose omission [Recovered/Resolved]
  - Vomiting [Recovered/Resolved]
  - Sunburn [Recovering/Resolving]
  - Rash [Recovering/Resolving]
